FAERS Safety Report 21646861 (Version 1)
Quarter: 2022Q4

REPORT INFORMATION
  Report Type: Spontaneous
  Country: ES (occurrence: ES)
  Receive Date: 20221127
  Receipt Date: 20221127
  Transmission Date: 20230113
  Serious: Yes (Hospitalization)
  Sender: FDA-Public Use
  Company Number: None

PATIENT
  Age: 77 Year
  Sex: Male

DRUGS (13)
  1. LEVOFLOXACIN [Suspect]
     Active Substance: LEVOFLOXACIN
     Indication: Bronchitis
     Dosage: LEVOFLOXACIN (2791A), UNIT DOSE : 500 MG, FREQUENCY TIME : 1 DAYS, DURATION : 5 DAYS
     Route: 065
     Dates: start: 20220803, end: 20220807
  2. FUROSEMIDE NORMON [Concomitant]
     Indication: Product used for unknown indication
     Dosage: EFG, 30 TABLETS, FORM STRENGTH : 40 MG, UNIT DOSE: 40 MG, FREQUENCY TIME : 1 DAYS
     Route: 065
     Dates: start: 20220208
  3. DANAZOL [Concomitant]
     Active Substance: DANAZOL
     Indication: Product used for unknown indication
     Dosage: 60 CAPSULES, FORM STRENGTH : 200 MG, UNIT DOSE : 200 MG, FREQUENCY TIME : 12 HOURS
     Route: 065
     Dates: start: 20190201
  4. EZETIMIBE\ROSUVASTATIN [Concomitant]
     Active Substance: EZETIMIBE\ROSUVASTATIN
     Indication: Product used for unknown indication
     Dosage: 10 MG/10 MG, 30 TABLETS, UNIT DOSE : 1 DOSAGE FORMS, FREQUENCY TIME : 1 DAYS
     Route: 065
     Dates: start: 20220329
  5. ASPIRIN [Concomitant]
     Active Substance: ASPIRIN
     Indication: Product used for unknown indication
     Dosage: EFG, 30 TABLETS (PVC- ALUMINUM), FORM STRENGTH : 100 MG, UNIT DOSE : 100 MG, FREQUENCY TIME : 1 DAYS
     Route: 065
     Dates: start: 20210202
  6. LINAGLIPTIN [Concomitant]
     Active Substance: LINAGLIPTIN
     Indication: Product used for unknown indication
     Dosage: 30 TABLETS, FORM STRENGTH : 5 MG, UNIT DOSE : 5 MG, FREQUENCY TIME : 1 DAYS
     Route: 065
     Dates: start: 20210604
  7. VENTOLIN [Concomitant]
     Active Substance: ALBUTEROL SULFATE
     Indication: Product used for unknown indication
     Dosage: 1 INHALER OF 200 DOSES, FORM STRENGTH : 100 UG, UNIT DOSE : 100 UG, FREQUENCY TIME : 8 HOURS
     Route: 065
     Dates: start: 20140520
  8. CALCIFEDIOL [Concomitant]
     Active Substance: CALCIFEDIOL
     Indication: Product used for unknown indication
     Dosage: 10 CAPSULES (PVC/PVDC-ALUMINUM BLISTER), FORM STRENGTH: 0.266 MG, UNIT DOSE: 0.26 MG, FREQUENCY TIME
     Route: 065
     Dates: start: 20210526
  9. AMLODIPINE NORMON [Concomitant]
     Indication: Product used for unknown indication
     Dosage: EFG, 30 TABLETS, FORM STRENGTH : 5 MG, UNIT DOSE : 5 MG, FREQUENCY TIME : 1 DAYS
     Route: 065
     Dates: start: 20210302
  10. BISOPROLOL FUMARATE [Concomitant]
     Active Substance: BISOPROLOL FUMARATE
     Indication: Product used for unknown indication
     Dosage: EFG, 28 TABLETS, FORM STRENGTH : 2.5 MG, UNIT DOSE: 2.5 MG, FREQUENCY TIME : 1 DAYS
     Route: 065
     Dates: start: 20210202
  11. BUDESONIDE [Concomitant]
     Active Substance: BUDESONIDE
     Indication: Product used for unknown indication
     Dosage: EASYHALER 200 MCG OCTOPUS FOR INHALATION, 1 INHALER OF 200 DOSES, UNIT DOSE : 200 UG, UNIT DOSE : 20
     Dates: start: 20180621
  12. PANTOPRAZOLE NORMON [Concomitant]
     Indication: Product used for unknown indication
     Dosage: EFG, 28 TABLETS (BLISTER), FORM STRENGTH : 20 MG, UNIT DOSE : 20 MG, FREQUENCY TIME : 1 DAYS
     Route: 065
     Dates: start: 20130528
  13. GLYCOPYRRONIUM\INDACATEROL [Concomitant]
     Active Substance: GLYCOPYRRONIUM\INDACATEROL
     Indication: Product used for unknown indication
     Dosage: 85MCG/43MCG POWDER FOR INHALATION (HARD CAPSULE) PACKAGING 30 CAPSULES + 1 INHALER, UNIT DOSE : 1 DO
     Route: 065
     Dates: start: 20180404

REACTIONS (1)
  - Myoclonus [Recovered/Resolved]

NARRATIVE: CASE EVENT DATE: 20220804
